FAERS Safety Report 9387317 (Version 1)
Quarter: 2013Q3

REPORT INFORMATION
  Report Type: Spontaneous
  Country: NL (occurrence: None)
  Receive Date: 20130702
  Receipt Date: 20130702
  Transmission Date: 20140515
  Serious: Yes (Other)
  Sender: FDA-Public Use
  Company Number: NL-ALKEM-000101

PATIENT
  Age: 36 Year
  Sex: Male

DRUGS (5)
  1. QUETIAPINE (QUETIAPINE) [Suspect]
     Indication: PRODUCT USED FOR UNKNOWN INDICATION
     Dosage: 300.00-MG-2.00 TIMES PER 1.0DAYS
  2. VENLAFAXINE(VENLAFAXINE) [Concomitant]
  3. TEMAZEPAM (TEMAZEPAM) [Concomitant]
  4. LORAZEPAM(LORAZEPAM) [Concomitant]
  5. PROMETHAZINE(PROMETHAZINE) [Concomitant]

REACTIONS (2)
  - Hypothyroidism [None]
  - Blood pressure increased [None]
